FAERS Safety Report 8023344-3 (Version None)
Quarter: 2012Q1

REPORT INFORMATION
  Report Type: 
  Country: None (occurrence: None)
  Receive Date: 20120104
  Receipt Date: 20111229
  Transmission Date: 20120608
  Serious: Yes (Hospitalization)
  Sender: FDA-Public Use
  Company Number: DE-AMGEN-DEUCT2011060271

PATIENT
  Age: 63 Year
  Sex: Male

DRUGS (5)
  1. CINACALCET HYDROCHLORIDE [Suspect]
     Indication: HYPERPARATHYROIDISM SECONDARY
     Dosage: UNK
     Route: 048
     Dates: start: 20070521
  2. ASPIRIN [Concomitant]
  3. DIGITOXIN TAB [Concomitant]
  4. ALFACALCIDOL [Concomitant]
     Dosage: 25 MUG, QD
  5. DIGOXIN [Concomitant]

REACTIONS (2)
  - SHUNT THROMBOSIS [None]
  - SEPTIC SHOCK [None]
